FAERS Safety Report 25008488 (Version 1)
Quarter: 2025Q1

REPORT INFORMATION
  Report Type: Spontaneous
  Country: BO (occurrence: BO)
  Receive Date: 20250225
  Receipt Date: 20250225
  Transmission Date: 20250409
  Serious: Yes (Other)
  Sender: ROCHE
  Company Number: BO-ROCHE-10000211784

PATIENT
  Sex: Female

DRUGS (2)
  1. ACTEMRA [Suspect]
     Active Substance: TOCILIZUMAB
     Indication: Antiphospholipid antibodies negative
     Route: 042
     Dates: start: 202501
  2. ACTEMRA [Suspect]
     Active Substance: TOCILIZUMAB
     Indication: Interleukin level increased

REACTIONS (4)
  - Anaphylactic shock [Unknown]
  - Blood pressure decreased [Unknown]
  - Tachycardia [Unknown]
  - Off label use [Unknown]

NARRATIVE: CASE EVENT DATE: 20250101
